FAERS Safety Report 18394570 (Version 1)
Quarter: 2020Q4

REPORT INFORMATION
  Report Type: Spontaneous
  Country: CN (occurrence: CN)
  Receive Date: 20201017
  Receipt Date: 20201017
  Transmission Date: 20210114
  Serious: Yes (Other)
  Sender: FDA-Public Use
  Company Number: NVSC2020CN227398

PATIENT
  Age: 37 Year
  Sex: Female

DRUGS (1)
  1. COSENTYX [Suspect]
     Active Substance: SECUKINUMAB
     Indication: PALMOPLANTAR PUSTULOSIS
     Dosage: UNK UNK, UNKNOWN
     Route: 065
     Dates: start: 20200527

REACTIONS (7)
  - Menstruation delayed [Unknown]
  - Skin lesion [Not Recovered/Not Resolved]
  - Otitis media [Unknown]
  - Omphalitis [Unknown]
  - Product use in unapproved indication [Unknown]
  - Pustule [Not Recovered/Not Resolved]
  - Menstrual disorder [Unknown]
